FAERS Safety Report 22656756 (Version 1)
Quarter: 2023Q2

REPORT INFORMATION
  Report Type: Spontaneous
  Country: US (occurrence: US)
  Receive Date: 20230630
  Receipt Date: 20230630
  Transmission Date: 20230721
  Serious: No
  Sender: FDA-Public Use
  Company Number: US-Accord-276292

PATIENT
  Sex: Male

DRUGS (2)
  1. CLONAZEPAM [Suspect]
     Active Substance: CLONAZEPAM
     Indication: Bipolar disorder
     Dosage: 1 MG, 1 TO 2 PER NIGHT
     Route: 048
     Dates: start: 20220825
  2. LISINOPRIL [Concomitant]
     Active Substance: LISINOPRIL

REACTIONS (10)
  - Oropharyngeal pain [Unknown]
  - Ocular hyperaemia [Unknown]
  - Keratosis pilaris [Unknown]
  - Tinnitus [Unknown]
  - Back pain [Unknown]
  - Heart rate increased [Unknown]
  - Hypertension [Unknown]
  - Oxygen saturation decreased [Unknown]
  - Hypoaesthesia [Unknown]
  - Disturbance in attention [Unknown]
